FAERS Safety Report 5609300-0 (Version None)
Quarter: 2008Q1

REPORT INFORMATION
  Report Type: 
  Country: None (occurrence: None)
  Receive Date: 20080131
  Receipt Date: 20080124
  Transmission Date: 20080703
  Serious: Yes (Other)
  Sender: FDA-Public Use
  Company Number: DE-MERCK-0801DEU00068

PATIENT
  Sex: Male

DRUGS (2)
  1. COZAAR [Suspect]
     Route: 048
     Dates: start: 20030101, end: 20080101
  2. ASPIRIN [Concomitant]
     Route: 048
     Dates: start: 20030101

REACTIONS (5)
  - DIZZINESS [None]
  - DYSGEUSIA [None]
  - HYPOKALAEMIA [None]
  - RENAL FAILURE ACUTE [None]
  - SHOCK [None]
